FAERS Safety Report 6250420-8 (Version None)
Quarter: 2009Q2

REPORT INFORMATION
  Report Type: 
  Country: None (occurrence: None)
  Receive Date: 20090630
  Receipt Date: 20090626
  Transmission Date: 20091009
  Serious: Yes (Other)
  Sender: FDA-Public Use
  Company Number: US-BRISTOL-MYERS SQUIBB COMPANY-14681738

PATIENT
  Age: 12 Year

DRUGS (1)
  1. ABILIFY [Suspect]

REACTIONS (2)
  - BRAIN NEOPLASM [None]
  - CEREBROVASCULAR ACCIDENT [None]
